FAERS Safety Report 21053429 (Version 2)
Quarter: 2022Q3

REPORT INFORMATION
  Report Type: Report from Study
  Country: US (occurrence: US)
  Receive Date: 20220707
  Receipt Date: 20220708
  Transmission Date: 20221027
  Serious: Yes (Hospitalization, Other)
  Sender: FDA-Public Use
  Company Number: US-SANOFI-01176348

PATIENT
  Age: 77 Year
  Sex: Male

DRUGS (2)
  1. DUPILUMAB [Suspect]
     Active Substance: DUPILUMAB
     Indication: Dermatitis atopic
     Dosage: 1X (ONCE)
     Dates: start: 202205, end: 202205
  2. DUPILUMAB [Suspect]
     Active Substance: DUPILUMAB
     Dosage: 300 MG QOW
     Route: 058
     Dates: start: 20220518

REACTIONS (3)
  - Pancreatitis [Unknown]
  - Blood urine present [Not Recovered/Not Resolved]
  - Bladder mass [Not Recovered/Not Resolved]

NARRATIVE: CASE EVENT DATE: 20220704
